FAERS Safety Report 19246305 (Version 3)
Quarter: 2021Q3

REPORT INFORMATION
  Report Type: Spontaneous
  Country: SI (occurrence: SI)
  Receive Date: 20210512
  Receipt Date: 20210709
  Transmission Date: 20211014
  Serious: Yes (Other)
  Sender: FDA-Public Use
  Company Number: SI-PFIZER INC-2021506882

PATIENT
  Sex: Female

DRUGS (12)
  1. CAPECITABINE. [Suspect]
     Active Substance: CAPECITABINE
     Indication: BREAST CANCER METASTATIC
     Dosage: UNK, 2 YEARS AND 9 MONTHS
     Route: 065
     Dates: start: 201612, end: 201908
  2. MEGESTROL ACETATE. [Suspect]
     Active Substance: MEGESTROL ACETATE
     Indication: BREAST CANCER METASTATIC
     Dosage: UNK, MAINTENANCE THERAPY
     Route: 065
     Dates: start: 201612, end: 201711
  3. ABEMACICLIB [Suspect]
     Active Substance: ABEMACICLIB
     Indication: BREAST CANCER METASTATIC
     Dosage: UNK
     Route: 065
     Dates: start: 202007, end: 202008
  4. FULVESTRANT. [Suspect]
     Active Substance: FULVESTRANT
     Indication: BREAST CANCER METASTATIC
     Dosage: UNK, 1 YEAR AND 3 MONTHS
     Route: 065
     Dates: start: 201504, end: 201606
  5. EXEMESTANE. [Suspect]
     Active Substance: EXEMESTANE
     Indication: BREAST CANCER METASTATIC
     Dosage: UNK, 9 MONTHS
     Route: 065
     Dates: start: 201407, end: 201503
  6. LETROZOLE. [Suspect]
     Active Substance: LETROZOLE
     Indication: BREAST CANCER METASTATIC
     Dosage: UNK, 5 YEARS AND 8 MONTHS
     Route: 065
     Dates: start: 200811, end: 201406
  7. FULVESTRANT. [Suspect]
     Active Substance: FULVESTRANT
     Dosage: UNK
     Route: 065
     Dates: start: 202007, end: 202009
  8. CLODRONATE DISOD. [Concomitant]
     Dosage: UNK STOPPED AFTER 5 YEARS
     Route: 065
     Dates: start: 201503, end: 201505
  9. DENOSUMAB [Suspect]
     Active Substance: DENOSUMAB
     Indication: BREAST CANCER METASTATIC
     Dosage: UNK
     Route: 065
     Dates: start: 201505
  10. PACLITAXEL. [Suspect]
     Active Substance: PACLITAXEL
     Indication: BREAST CANCER METASTATIC
     Dosage: UNK, 5+5 MONTHS
     Route: 065
     Dates: start: 201909, end: 202001
  11. CLODRONATE DISOD. [Concomitant]
     Dosage: UNK
     Route: 065
     Dates: start: 201503, end: 201505
  12. CLODRONATE DISOD. [Concomitant]
     Dosage: UNK
     Route: 065

REACTIONS (9)
  - Hepatic steatosis [Not Recovered/Not Resolved]
  - Weight decreased [Unknown]
  - PIK3CA-activated mutation [Unknown]
  - Arthralgia [Unknown]
  - Neutropenia [Unknown]
  - Bone pain [Unknown]
  - Liver disorder [Unknown]
  - Carbohydrate antigen 15-3 increased [Not Recovered/Not Resolved]
  - Neoplasm progression [Not Recovered/Not Resolved]

NARRATIVE: CASE EVENT DATE: 201406
